FAERS Safety Report 9492405 (Version 3)
Quarter: 2013Q3

REPORT INFORMATION
  Report Type: Spontaneous
  Country: JP (occurrence: JP)
  Receive Date: 20130830
  Receipt Date: 20130923
  Transmission Date: 20140515
  Serious: Yes (Other)
  Sender: FDA-Public Use
  Company Number: JP-PFIZER INC-2013247076

PATIENT
  Age: 28 Year
  Sex: Female

DRUGS (1)
  1. ZITHROMAC SR [Suspect]
     Route: 048

REACTIONS (1)
  - Cardio-respiratory arrest [Unknown]
